FAERS Safety Report 10056775 (Version 2)
Quarter: 2014Q2

REPORT INFORMATION
  Report Type: Report from Study
  Country: GB (occurrence: GB)
  Receive Date: 20140403
  Receipt Date: 20140403
  Transmission Date: 20141212
  Serious: Yes (Hospitalization)
  Sender: FDA-Public Use
  Company Number: PHHO2014GB003920

PATIENT
  Sex: 0

DRUGS (7)
  1. RANIBIZUMAB [Suspect]
     Indication: AGE-RELATED MACULAR DEGENERATION
     Dosage: 0.5 MG/0.05ML
     Route: 031
     Dates: start: 20130919, end: 20130919
  2. RANIBIZUMAB [Suspect]
     Dosage: 0.5 MG/0.05ML
     Route: 031
     Dates: start: 20131017, end: 20131017
  3. RANIBIZUMAB [Suspect]
     Dosage: 0.5 MG/0.05ML
     Route: 031
     Dates: start: 20131220, end: 20131220
  4. RANIBIZUMAB [Suspect]
     Dosage: 0.5 MG/0.05ML
     Route: 031
     Dates: start: 20140116, end: 20140116
  5. RANIBIZUMAB [Suspect]
     Dosage: 0.5 MG/0.05ML
     Route: 031
     Dates: start: 20140320, end: 20140320
  6. CHLORAMPHENICOL [Suspect]
  7. METFORMIN [Suspect]

REACTIONS (2)
  - Gastroenteritis [Recovered/Resolved]
  - Diarrhoea [Not Recovered/Not Resolved]
